FAERS Safety Report 7949953-5 (Version None)
Quarter: 2011Q4

REPORT INFORMATION
  Report Type: 
  Country: None (occurrence: None)
  Receive Date: 20111130
  Receipt Date: 20111122
  Transmission Date: 20120403
  Serious: Yes (Hospitalization)
  Sender: FDA-Public Use
  Company Number: GR-BRISTOL-MYERS SQUIBB COMPANY-14974968

PATIENT
  Age: 42 Year
  Sex: Female

DRUGS (2)
  1. LEVOTHYROXINE SODIUM [Concomitant]
     Dates: start: 20080827
  2. ARIPIPRAZOLE [Suspect]
     Indication: BIPOLAR DISORDER
     Dosage: 5MG:04-13DEC 10MG:14D-22DEC 15MG:23DEC-11JAN 15MG:12-18JAN 30MG:19-28JAN 29JAN-07FEB 08FEB10
     Route: 048
     Dates: start: 20091204

REACTIONS (1)
  - BIPOLAR DISORDER [None]
